FAERS Safety Report 13489287 (Version 1)
Quarter: 2017Q2

REPORT INFORMATION
  Report Type: Spontaneous
  Country: US (occurrence: US)
  Receive Date: 20170426
  Receipt Date: 20170426
  Transmission Date: 20170830
  Serious: No
  Sender: FDA-Public Use
  Company Number: US-ALKERMES INC.-ALK-2017-000840

PATIENT
  Age: 55 Year
  Sex: Male

DRUGS (1)
  1. VIVITROL [Suspect]
     Active Substance: NALTREXONE
     Indication: ALCOHOLISM
     Dosage: 380 MG, QMO
     Route: 030

REACTIONS (9)
  - Injection site reaction [Recovered/Resolved]
  - Tobacco user [Unknown]
  - Gingival pain [Unknown]
  - Stress [Unknown]
  - Anxiety [Unknown]
  - Injection site pain [Recovered/Resolved]
  - Swelling face [Unknown]
  - Gingival bleeding [Unknown]
  - Dizziness [Unknown]

NARRATIVE: CASE EVENT DATE: 20170303
